FAERS Safety Report 9536372 (Version 1)
Quarter: 2013Q3

REPORT INFORMATION
  Report Type: Spontaneous
  Country: US (occurrence: None)
  Receive Date: 20130917
  Receipt Date: 20130917
  Transmission Date: 20140515
  Serious: No
  Sender: FDA-Public Use
  Company Number: None

PATIENT
  Age: 33 Year
  Sex: Male
  Weight: 86.18 kg

DRUGS (6)
  1. TUSSIONEX [Suspect]
     Indication: COUGH
     Dosage: 1 TEASPOON
     Route: 048
     Dates: start: 1998
  2. TUSSIONEX PENNKINETIC [Suspect]
     Dosage: 1 TEASPOON
     Route: 048
     Dates: start: 1998
  3. METFORMIN [Concomitant]
  4. MULTIVITAMIN [Concomitant]
  5. BERBERINE [Concomitant]
  6. TRIAMCINOLONE [Concomitant]

REACTIONS (3)
  - Pruritus generalised [None]
  - Skin ulcer [None]
  - Product formulation issue [None]
